FAERS Safety Report 24584139 (Version 2)
Quarter: 2024Q4

REPORT INFORMATION
  Report Type: Spontaneous
  Country: US (occurrence: US)
  Receive Date: 20241106
  Receipt Date: 20241114
  Transmission Date: 20250114
  Serious: Yes (Life-Threatening, Hospitalization, Other)
  Sender: HIKMA
  Company Number: US-HIKMA PHARMACEUTICALS USA INC.-US-H14001-24-10153

PATIENT
  Age: 78 Year
  Sex: Female

DRUGS (7)
  1. FLECAINIDE [Suspect]
     Active Substance: FLECAINIDE
     Indication: Cardioversion
     Dosage: 150 MILLIGRAM, Q12H
     Route: 048
  2. FLECAINIDE [Suspect]
     Active Substance: FLECAINIDE
     Indication: Atrial fibrillation
     Dosage: 300 MILLIGRAM
     Route: 048
     Dates: start: 202210
  3. FLECAINIDE [Suspect]
     Active Substance: FLECAINIDE
     Dosage: 300 MILLIGRAM, AS NEEDED
     Route: 048
     Dates: start: 202211
  4. FLECAINIDE [Suspect]
     Active Substance: FLECAINIDE
     Dosage: 900 MILLIGRAM, QD
     Route: 048
     Dates: start: 2023
  5. ALBUTEROL [Concomitant]
     Active Substance: ALBUTEROL
     Indication: Asthma prophylaxis
     Dosage: UNKNOWN (FREQUENT USE)
     Route: 065
  6. VERAPAMIL [Concomitant]
     Active Substance: VERAPAMIL HYDROCHLORIDE
     Dosage: 120 MILLIGRAM, Q12H
     Route: 065
     Dates: start: 202211
  7. VERAPAMIL [Concomitant]
     Active Substance: VERAPAMIL HYDROCHLORIDE
     Indication: Atrial fibrillation
     Dosage: 240 MILLIGRAM, Q12H
     Route: 065

REACTIONS (10)
  - Asthenia [Unknown]
  - Nausea [Unknown]
  - Vomiting [Unknown]
  - Dyspnoea [Unknown]
  - Electrocardiogram QRS complex prolonged [Recovering/Resolving]
  - Ejection fraction decreased [Unknown]
  - Ventricular hypokinesia [Unknown]
  - Heart rate increased [Recovering/Resolving]
  - Toxicity to various agents [Unknown]
  - Accidental overdose [Unknown]

NARRATIVE: CASE EVENT DATE: 20230101
